FAERS Safety Report 7490008-4 (Version None)
Quarter: 2011Q2

REPORT INFORMATION
  Report Type: 
  Country: None (occurrence: None)
  Receive Date: 20110519
  Receipt Date: 20110506
  Transmission Date: 20111010
  Serious: Yes (Hospitalization)
  Sender: FDA-Public Use
  Company Number: US-JNJFOC-20110406738

PATIENT
  Sex: Male
  Weight: 95.26 kg

DRUGS (4)
  1. FENTANYL [Suspect]
     Indication: BACK PAIN
     Route: 062
     Dates: start: 19950101, end: 20050101
  2. FENTANYL-100 [Suspect]
     Route: 062
  3. FENTANYL-100 [Suspect]
     Indication: BACK PAIN
     Route: 062
     Dates: start: 20050101
  4. MORPHINE [Suspect]
     Indication: BACK PAIN
     Route: 042
     Dates: end: 20101101

REACTIONS (5)
  - PRODUCT QUALITY ISSUE [None]
  - DYSPNOEA [None]
  - DRUG ADMINISTERED AT INAPPROPRIATE SITE [None]
  - CARDIAC OPERATION [None]
  - DRUG DOSE OMISSION [None]
